FAERS Safety Report 9785422 (Version 1)
Quarter: 2013Q4

REPORT INFORMATION
  Report Type: Spontaneous
  Country: AU (occurrence: AU)
  Receive Date: 20131227
  Receipt Date: 20131227
  Transmission Date: 20140711
  Serious: Yes (Other)
  Sender: FDA-Public Use
  Company Number: AU-ABBVIE-13P-008-1181295-00

PATIENT
  Sex: Female

DRUGS (6)
  1. HUMIRA [Suspect]
     Indication: CROHN^S DISEASE
  2. INFLIXIMAB [Suspect]
     Indication: CROHN^S DISEASE
  3. INFLIXIMAB [Suspect]
     Indication: FEMALE GENITAL TRACT FISTULA
  4. AZATHIOPRINE [Suspect]
     Indication: CROHN^S DISEASE
  5. AZATHIOPRINE [Suspect]
     Indication: FEMALE GENITAL TRACT FISTULA
  6. TOTAL PARENTERAL NUTRITION [Concomitant]
     Indication: PRODUCT USED FOR UNKNOWN INDICATION

REACTIONS (1)
  - Adenocarcinoma of colon [Unknown]
